FAERS Safety Report 10078499 (Version 2)
Quarter: 2014Q2

REPORT INFORMATION
  Report Type: Spontaneous
  Country: GB (occurrence: GB)
  Receive Date: 20140415
  Receipt Date: 20140506
  Transmission Date: 20141212
  Serious: Yes (Other)
  Sender: FDA-Public Use
  Company Number: GB-GE HEALTHCARE MEDICAL DIAGNOSTICS-MYVW-PR-1404S-0067

PATIENT
  Age: 53 Year
  Sex: Male

DRUGS (3)
  1. MYOVIEW [Suspect]
     Indication: MYOCARDIAL ISCHAEMIA
     Dosage: DOSE NOT REPORTED
     Route: 042
     Dates: start: 20140404, end: 20140404
  2. MYOVIEW [Suspect]
     Indication: DIAGNOSTIC PROCEDURE
  3. TECHNETIUM 99M GENERATOR [Concomitant]

REACTIONS (4)
  - Presyncope [Recovering/Resolving]
  - Dizziness [Recovering/Resolving]
  - Chest pain [Recovering/Resolving]
  - Pallor [Recovering/Resolving]
